FAERS Safety Report 4890208-3 (Version None)
Quarter: 2006Q1

REPORT INFORMATION
  Report Type: 
  Country: None (occurrence: None)
  Receive Date: 20060124
  Receipt Date: 20060118
  Transmission Date: 20060701
  Serious: Yes (Death, Other)
  Sender: FDA-Public Use
  Company Number: US-MERCK-0601USA01870

PATIENT
  Sex: Male

DRUGS (3)
  1. ZOCOR [Suspect]
     Route: 048
  2. NEFAZODONE HYDROCHLORIDE [Concomitant]
     Route: 065
  3. GEMFIBROZIL [Concomitant]
     Route: 065

REACTIONS (2)
  - HYPERKALAEMIA [None]
  - RHABDOMYOLYSIS [None]
